FAERS Safety Report 22755188 (Version 4)
Quarter: 2024Q4

REPORT INFORMATION
  Report Type: Spontaneous
  Country: JP (occurrence: JP)
  Receive Date: 20230727
  Receipt Date: 20241210
  Transmission Date: 20250115
  Serious: Yes (Hospitalization)
  Sender: AMGEN
  Company Number: JP-DSJP-DSJ-2022-138034

PATIENT
  Sex: Female

DRUGS (1)
  1. DENOSUMAB [Suspect]
     Active Substance: DENOSUMAB
     Indication: Osteoporosis
     Dosage: 60 MG, ONCE EVERY 6 MO
     Route: 065
     Dates: end: 20220214

REACTIONS (12)
  - Rectal cancer [Not Recovered/Not Resolved]
  - Dizziness [Not Recovered/Not Resolved]
  - Colon cancer [Not Recovered/Not Resolved]
  - Surgery [Recovered/Resolved]
  - Tooth disorder [Not Recovered/Not Resolved]
  - Temporomandibular pain and dysfunction syndrome [Unknown]
  - Tooth extraction [Unknown]
  - Temporomandibular pain and dysfunction syndrome [Unknown]
  - Trismus [Unknown]
  - Illness [Unknown]
  - Compression fracture [Unknown]
  - Dental care [Unknown]

NARRATIVE: CASE EVENT DATE: 20221001
